FAERS Safety Report 6767385-2 (Version None)
Quarter: 2010Q2

REPORT INFORMATION
  Report Type: 
  Country: None (occurrence: None)
  Receive Date: 20100614
  Receipt Date: 20100514
  Transmission Date: 20101027
  Serious: No
  Sender: FDA-Public Use
  Company Number: US-BAYER-201015673BCC

PATIENT
  Age: 71 Year

DRUGS (1)
  1. FINACEA [Suspect]
     Indication: ROSACEA
     Route: 061

REACTIONS (3)
  - BURNING SENSATION [None]
  - ERYTHEMA [None]
  - ROSACEA [None]
